FAERS Safety Report 5323371-0 (Version None)
Quarter: 2007Q2

REPORT INFORMATION
  Report Type: 
  Country: None (occurrence: None)
  Receive Date: 20070514
  Receipt Date: 20070503
  Transmission Date: 20071010
  Serious: Yes (Other)
  Sender: FDA-Public Use
  Company Number: PHNR2007AU01086

PATIENT
  Age: 80 Year
  Sex: Female

DRUGS (5)
  1. VOLTAREN [Suspect]
     Indication: EPICONDYLITIS
     Dosage: UNK, ONCE/SINGLE
     Route: 061
     Dates: start: 20070502, end: 20070502
  2. ASPIRIN [Concomitant]
     Dosage: EVERY OTHER DAY
  3. CLARITIN [Concomitant]
  4. FISH OIL [Concomitant]
  5. GLUCOSAMINE [Concomitant]

REACTIONS (2)
  - GLOSSODYNIA [None]
  - SWOLLEN TONGUE [None]
